FAERS Safety Report 5727509-2 (Version None)
Quarter: 2008Q2

REPORT INFORMATION
  Report Type: 
  Country: None (occurrence: None)
  Receive Date: 20080429
  Receipt Date: 20070823
  Transmission Date: 20081010
  Serious: Yes (Other)
  Sender: FDA-Public Use
  Company Number: 2007-163324-NL

PATIENT
  Age: 30 Year
  Sex: Female

DRUGS (4)
  1. PUREGON [Suspect]
     Indication: INFERTILITY FEMALE
  2. OVIDREL [Suspect]
     Indication: INFERTILITY FEMALE
  3. LUPRON [Suspect]
     Indication: INFERTILITY FEMALE
  4. MENOPUR [Suspect]
     Indication: INFERTILITY FEMALE

REACTIONS (1)
  - ABORTION SPONTANEOUS [None]
